FAERS Safety Report 22156093 (Version 1)
Quarter: 2023Q1

REPORT INFORMATION
  Report Type: Spontaneous
  Country: FR (occurrence: None)
  Receive Date: 20230330
  Receipt Date: 20230330
  Transmission Date: 20230417
  Serious: Yes (Other)
  Sender: FDA-Public Use
  Company Number: FR-ROCHE-3319489

PATIENT
  Age: 54 Year
  Sex: Female
  Weight: 67 kg

DRUGS (17)
  1. VALGANCICLOVIR HYDROCHLORIDE [Suspect]
     Active Substance: VALGANCICLOVIR HYDROCHLORIDE
     Indication: Antiviral prophylaxis
     Route: 048
     Dates: start: 202206, end: 20221017
  2. ELIQUIS [Suspect]
     Active Substance: APIXABAN
     Indication: Deep vein thrombosis
     Route: 048
     Dates: start: 20220920, end: 202210
  3. ATORVASTATIN [Concomitant]
     Active Substance: ATORVASTATIN
  4. CHOLECALCIFEROL [Concomitant]
     Active Substance: CHOLECALCIFEROL
  5. INSULIN ASPART [Concomitant]
     Active Substance: INSULIN ASPART
  6. NOVORAPID [Concomitant]
     Active Substance: INSULIN ASPART
  7. SYMBICORT [Concomitant]
     Active Substance: BUDESONIDE\FORMOTEROL FUMARATE DIHYDRATE
  8. PROGRAF [Concomitant]
     Active Substance: TACROLIMUS
  9. POSACONAZOLE [Concomitant]
     Active Substance: POSACONAZOLE
  10. PREDNISONE [Concomitant]
     Active Substance: PREDNISONE
  11. MYFORTIC [Concomitant]
     Active Substance: MYCOPHENOLATE SODIUM
  12. ATOVAQUONE [Concomitant]
     Active Substance: ATOVAQUONE
  13. PANTOPRAZOLE [Concomitant]
     Active Substance: PANTOPRAZOLE
  14. TRAMADOL [Concomitant]
     Active Substance: TRAMADOL
  15. MELATONIN [Concomitant]
     Active Substance: MELATONIN
  16. ACETAMINOPHEN [Concomitant]
     Active Substance: ACETAMINOPHEN
  17. PAROXETINE HYDROCHLORIDE [Concomitant]
     Active Substance: PAROXETINE HYDROCHLORIDE

REACTIONS (1)
  - Agranulocytosis [Recovered/Resolved]

NARRATIVE: CASE EVENT DATE: 20220930
